FAERS Safety Report 16829791 (Version 3)
Quarter: 2019Q4

REPORT INFORMATION
  Report Type: Report from Study
  Country: US (occurrence: US)
  Receive Date: 20190919
  Receipt Date: 20191126
  Transmission Date: 20200122
  Serious: Yes (Hospitalization)
  Sender: FDA-Public Use
  Company Number: US-ACTELION-A-US2019-194573

PATIENT
  Sex: Female
  Weight: 59.86 kg

DRUGS (5)
  1. UPTRAVI [Suspect]
     Active Substance: SELEXIPAG
     Dosage: 200 MCG, BID
     Route: 048
  2. ADCIRCA [Concomitant]
     Active Substance: TADALAFIL
  3. NIFEDIPINE. [Concomitant]
     Active Substance: NIFEDIPINE
  4. UPTRAVI [Suspect]
     Active Substance: SELEXIPAG
     Indication: PULMONARY ARTERIAL HYPERTENSION
     Dosage: 600 MCG, BID
     Route: 048
  5. TYVASO [Concomitant]
     Active Substance: TREPROSTINIL

REACTIONS (7)
  - Pain [Unknown]
  - Vomiting [Unknown]
  - Dyspnoea [Unknown]
  - Fluid overload [Unknown]
  - Limb injury [Unknown]
  - Malaise [Unknown]
  - Dementia [Unknown]
